FAERS Safety Report 24316484 (Version 1)
Quarter: 2024Q3

REPORT INFORMATION
  Report Type: Spontaneous
  Country: GB (occurrence: GB)
  Receive Date: 20240913
  Receipt Date: 20240913
  Transmission Date: 20241016
  Serious: Yes (Death)
  Sender: NOVARTIS
  Company Number: None

PATIENT
  Age: 36 Year
  Sex: Male

DRUGS (3)
  1. CAPECITABINE [Suspect]
     Active Substance: CAPECITABINE
     Indication: Colorectal cancer metastatic
     Dosage: 1900 MG, BID
     Route: 048
     Dates: start: 20070806, end: 20070814
  2. PAZOPANIB [Suspect]
     Active Substance: PAZOPANIB
     Indication: Colorectal cancer metastatic
     Dosage: 800 MG
     Route: 048
     Dates: start: 20070806, end: 20070814
  3. OXALIPLATIN [Suspect]
     Active Substance: OXALIPLATIN
     Indication: Colorectal cancer metastatic
     Dosage: 250 MG
     Route: 042
     Dates: start: 20070806, end: 20070806

REACTIONS (1)
  - Cardiac arrest [Fatal]

NARRATIVE: CASE EVENT DATE: 20070815
